FAERS Safety Report 18170423 (Version 3)
Quarter: 2022Q2

REPORT INFORMATION
  Report Type: Spontaneous
  Country: US (occurrence: US)
  Receive Date: 20200819
  Receipt Date: 20220513
  Transmission Date: 20220720
  Serious: Yes (Hospitalization, Other)
  Sender: FDA-Public Use
  Company Number: US-JNJFOC-20200824283

PATIENT
  Sex: Male

DRUGS (9)
  1. RISPERDAL [Suspect]
     Active Substance: RISPERIDONE
     Indication: Bipolar II disorder
     Route: 048
     Dates: start: 20111201
  2. RISPERDAL [Suspect]
     Active Substance: RISPERIDONE
     Indication: Attention deficit hyperactivity disorder
     Route: 048
     Dates: start: 20120103, end: 2012
  3. RISPERDAL [Suspect]
     Active Substance: RISPERIDONE
     Dosage: VARYING DOSES OF 0.5 MG TWICE A DAY (NOT GETTING THE NOON DOSE), 0.5 AND 0.25 MG THRICE A DAY
     Route: 048
     Dates: start: 2012, end: 2012
  4. RISPERDAL [Suspect]
     Active Substance: RISPERIDONE
     Dosage: 0.25 MG QAM, 0.5 Q NOON AND 0.25 QPM
     Route: 048
     Dates: start: 2012
  5. RISPERDAL [Suspect]
     Active Substance: RISPERIDONE
     Dosage: 0.75MG AM, PM AND .5 MG MIDDAY
     Route: 048
  6. RISPERDAL [Suspect]
     Active Substance: RISPERIDONE
     Dosage: .5MG AM, PM, .5MG MIDDAY
     Route: 048
     Dates: end: 20130801
  7. RISPERDAL [Suspect]
     Active Substance: RISPERIDONE
     Route: 048
     Dates: start: 2007
  8. RISPERIDONE [Suspect]
     Active Substance: RISPERIDONE
     Indication: Product used for unknown indication
     Route: 048
     Dates: start: 2011, end: 2013
  9. CLONIDINE [Concomitant]
     Active Substance: CLONIDINE

REACTIONS (9)
  - Suicide attempt [Unknown]
  - Mental impairment [Unknown]
  - Hallucination, auditory [Unknown]
  - Emotional disorder [Unknown]
  - Hyperhidrosis [Unknown]
  - Gynaecomastia [Not Recovered/Not Resolved]
  - Weight increased [Unknown]
  - Therapeutic product effect incomplete [Unknown]
  - Sedation [Unknown]

NARRATIVE: CASE EVENT DATE: 20120101
